FAERS Safety Report 19785542 (Version 1)
Quarter: 2021Q3

REPORT INFORMATION
  Report Type: Spontaneous
  Country: US (occurrence: US)
  Receive Date: 20210903
  Receipt Date: 20210903
  Transmission Date: 20211014
  Serious: Yes (Other)
  Sender: FDA-Public Use
  Company Number: NVSC2021US197069

PATIENT
  Age: 8 Year
  Sex: Female

DRUGS (4)
  1. ETOPOSIDE. [Suspect]
     Active Substance: ETOPOSIDE
     Indication: INTRACRANIAL GERM CELL TUMOUR
     Dosage: 6 CYCLES
     Route: 065
  2. IFOSFAMIDE. [Suspect]
     Active Substance: IFOSFAMIDE
     Indication: INTRACRANIAL GERM CELL TUMOUR
     Dosage: 6 CYCLES
     Route: 065
  3. NITRIC OXIDE. [Concomitant]
     Active Substance: NITRIC OXIDE
     Indication: PULMONARY HYPERTENSION
     Dosage: UNK
     Route: 055
  4. CARBOPLATIN. [Suspect]
     Active Substance: CARBOPLATIN
     Indication: INTRACRANIAL GERM CELL TUMOUR
     Dosage: 6 CYCLES
     Route: 065

REACTIONS (2)
  - Tumour lysis syndrome [Recovered/Resolved]
  - Product use in unapproved indication [Unknown]
